FAERS Safety Report 20999218 (Version 4)
Quarter: 2022Q2

REPORT INFORMATION
  Report Type: Spontaneous
  Country: US (occurrence: US)
  Receive Date: 20220623
  Receipt Date: 20220629
  Transmission Date: 20220721
  Serious: No
  Sender: FDA-Public Use
  Company Number: US-PFIZER INC-202200868838

PATIENT
  Age: 91 Year
  Sex: Female
  Weight: 84.37 kg

DRUGS (1)
  1. IBRANCE [Suspect]
     Active Substance: PALBOCICLIB
     Indication: Neoplasm malignant
     Dosage: 75 MG, CYCLIC (ONE TABLET FOR 21 DAYS AND OFF 7 DAYS)

REACTIONS (4)
  - Oral pain [Not Recovered/Not Resolved]
  - Blood pressure decreased [Unknown]
  - Weight increased [Unknown]
  - Illness [Unknown]
